FAERS Safety Report 4339073-3 (Version None)
Quarter: 2004Q2

REPORT INFORMATION
  Report Type: 
  Country: None (occurrence: None)
  Receive Date: 20040412
  Receipt Date: 20040330
  Transmission Date: 20050107
  Serious: Yes (Life-Threatening, Other)
  Sender: FDA-Public Use
  Company Number: 2004021850

PATIENT
  Sex: Male
  Weight: 89.8122 kg

DRUGS (5)
  1. VIAGRA [Suspect]
     Indication: ILL-DEFINED DISORDER
     Dosage: ORAL
     Route: 048
     Dates: start: 20030101
  2. VARDENAFIL HYDROCHLORIDE(VARDENAFIL HYDROCHLORIDE) [Suspect]
     Indication: ILL-DEFINED DISORDER
  3. FLUTICASONE PROPIONATE [Concomitant]
  4. TERAZOSIN (TERAZOSIN) [Concomitant]
  5. SALMETEROL XINAFOATE (SALMETEROL XINAFOATE) [Concomitant]

REACTIONS (4)
  - DRUG INEFFECTIVE [None]
  - LUNG NEOPLASM MALIGNANT [None]
  - PHARMACEUTICAL PRODUCT COMPLAINT [None]
  - RECURRENT CANCER [None]
